FAERS Safety Report 8970911 (Version 1)
Quarter: 2012Q4

REPORT INFORMATION
  Report Type: 
  Country: PL (occurrence: PL)
  Receive Date: 20121217
  Receipt Date: 20121217
  Transmission Date: 20130627
  Serious: Yes (Other)
  Sender: FDA-Public Use
  Company Number: PL-TEVA-376083ISR

PATIENT
  Sex: Female
  Weight: 52 kg

DRUGS (2)
  1. MTX [Suspect]
     Indication: PSORIATIC ARTHROPATHY
     Route: 048
     Dates: start: 201206, end: 201206
  2. CYA [Suspect]
     Indication: PSORIATIC ARTHROPATHY
     Route: 048
     Dates: start: 201209, end: 201212

REACTIONS (2)
  - Hepatic enzyme increased [Recovered/Resolved]
  - Blood pressure increased [Recovered/Resolved]
